FAERS Safety Report 18637521 (Version 10)
Quarter: 2021Q1

REPORT INFORMATION
  Report Type: Report from Study
  Country: TR (occurrence: TR)
  Receive Date: 20201218
  Receipt Date: 20210225
  Transmission Date: 20210419
  Serious: Yes (Hospitalization)
  Sender: FDA-Public Use
  Company Number: TR-EISAI MEDICAL RESEARCH-EC-2020-085510

PATIENT
  Age: 65 Year
  Sex: Female
  Weight: 86 kg

DRUGS (21)
  1. LENVATINIB [Suspect]
     Active Substance: LENVATINIB
     Route: 048
     Dates: start: 20201027, end: 20201207
  2. APIDRA [Concomitant]
     Active Substance: INSULIN GLULISINE
     Dates: start: 200901
  3. LANTUS [Concomitant]
     Active Substance: INSULIN GLARGINE
     Dates: start: 200901
  4. NORVASC [Concomitant]
     Active Substance: AMLODIPINE BESYLATE
     Dates: start: 20191118
  5. LACIPIL [Concomitant]
     Active Substance: LACIDIPINE
     Dates: start: 20200920
  6. BREQUAL [Concomitant]
     Dates: start: 20201027, end: 20210107
  7. GERALGINE K [Concomitant]
     Active Substance: ACETAMINOPHEN\CAFFEINE\CODEINE PHOSPHATE
     Dates: start: 20191209, end: 20210107
  8. AZITRO [Concomitant]
     Active Substance: AZITHROMYCIN
     Dates: start: 20201027, end: 20210107
  9. LENVATINIB [Suspect]
     Active Substance: LENVATINIB
     Indication: ENDOMETRIAL CANCER
     Dosage: STARTING AT 20 MG, FLUCTUATED DOSAGE
     Route: 048
     Dates: start: 20190930, end: 20201026
  10. FARXIGA [Concomitant]
     Active Substance: DAPAGLIFLOZIN PROPANEDIOL
     Dates: start: 200901
  11. KAPRIL [Concomitant]
     Dates: start: 20191118
  12. LENVATINIB [Suspect]
     Active Substance: LENVATINIB
     Route: 048
     Dates: start: 20210107
  13. PEMBROLIZUMAB. [Suspect]
     Active Substance: PEMBROLIZUMAB
     Route: 042
     Dates: start: 20201027, end: 20201027
  14. ATARAX [Concomitant]
     Active Substance: HYDROXYZINE HYDROCHLORIDE
     Dates: start: 20191015
  15. CO?DIOVAN [Concomitant]
     Active Substance: HYDROCHLOROTHIAZIDE\VALSARTAN
     Dates: start: 20191112
  16. PEMBROLIZUMAB. [Suspect]
     Active Substance: PEMBROLIZUMAB
     Route: 042
     Dates: start: 20201119
  17. MAGVITAL [Concomitant]
     Dates: start: 20200117
  18. TIROMEL [Concomitant]
     Dates: start: 20200117
  19. PEMBROLIZUMAB. [Suspect]
     Active Substance: PEMBROLIZUMAB
     Indication: ENDOMETRIAL CANCER
     Route: 042
     Dates: start: 20190930, end: 20201008
  20. LEVOTIRON [Concomitant]
     Active Substance: LEVOTHYROXINE SODIUM
     Dates: start: 20200117
  21. BRICANYL EXPECTORANT [Concomitant]
     Dates: start: 20201027, end: 20210107

REACTIONS (1)
  - Omphalitis [Recovered/Resolved]

NARRATIVE: CASE EVENT DATE: 20201101
